FAERS Safety Report 11811239 (Version 1)
Quarter: 2015Q4

REPORT INFORMATION
  Report Type: Other
  Country: US (occurrence: US)
  Receive Date: 20151208
  Receipt Date: 20151208
  Transmission Date: 20160305
  Serious: Yes (Other)
  Sender: FDA-Public Use
  Company Number: US-DEP_13155_2015

PATIENT
  Age: 87 Year
  Sex: Male
  Weight: 65 kg

DRUGS (7)
  1. METOPROLOL [Concomitant]
     Active Substance: METOPROLOL
     Dosage: FREQUENCY UNKNOWN
  2. BABY ASPIRIN [Concomitant]
     Active Substance: ASPIRIN
     Dosage: DF
  3. DILTIAZEM [Concomitant]
     Active Substance: DILTIAZEM
     Dosage: FREQUENCY UNKNOWN
  4. NUCYNTA ER [Suspect]
     Active Substance: TAPENTADOL HYDROCHLORIDE
     Indication: PAIN
     Dosage: ONCE
     Route: 048
     Dates: start: 2015, end: 2015
  5. NUCYNTA ER [Suspect]
     Active Substance: TAPENTADOL HYDROCHLORIDE
     Indication: NEURALGIA
     Route: 048
     Dates: start: 20150924, end: 201510
  6. NUCYNTA ER [Suspect]
     Active Substance: TAPENTADOL HYDROCHLORIDE
     Indication: BACK DISORDER
     Dosage: ONCE
     Route: 048
     Dates: start: 2015, end: 2015
  7. DIGOXIN. [Concomitant]
     Active Substance: DIGOXIN
     Indication: HEART RATE IRREGULAR
     Dosage: FREQUENCY UNKNOWN

REACTIONS (5)
  - Drug ineffective [Recovered/Resolved]
  - Lymphoma [Recovered/Resolved]
  - Weight decreased [Not Recovered/Not Resolved]
  - Nasopharyngitis [Not Recovered/Not Resolved]
  - Product quality issue [Recovered/Resolved]

NARRATIVE: CASE EVENT DATE: 2015
